FAERS Safety Report 9349291 (Version 2)
Quarter: 2013Q4

REPORT INFORMATION
  Report Type: Spontaneous
  Country: US (occurrence: US)
  Receive Date: 20130614
  Receipt Date: 20131210
  Transmission Date: 20140711
  Serious: Yes (Death, Hospitalization)
  Sender: FDA-Public Use
  Company Number: US-B.I. PHARMACEUTICALS,INC./RIDGEFIELD-2013-BI-16418BP

PATIENT
  Age: 89 Year
  Sex: Female
  Weight: 49.44 kg

DRUGS (9)
  1. PRADAXA [Suspect]
     Indication: ANTICOAGULANT THERAPY
     Dates: start: 20110121, end: 20110711
  2. COLACE [Concomitant]
  3. AMLODIPINE [Concomitant]
  4. LISINOPRIL [Concomitant]
  5. FERROUS SULFATE [Concomitant]
  6. ALLEGRA [Concomitant]
  7. LASIX [Concomitant]
  8. CALCIUM + D [Concomitant]
  9. SYNTHROID [Concomitant]

REACTIONS (4)
  - Haemorrhagic anaemia [Fatal]
  - Upper gastrointestinal haemorrhage [Unknown]
  - Pleural effusion [Unknown]
  - Atelectasis [Unknown]
